FAERS Safety Report 7628713-9 (Version None)
Quarter: 2011Q3

REPORT INFORMATION
  Report Type: 
  Country: None (occurrence: None)
  Receive Date: 20110715
  Receipt Date: 20110630
  Transmission Date: 20111222
  Serious: Yes (Hospitalization)
  Sender: FDA-Public Use
  Company Number: TPG2011A01351

PATIENT
  Age: 82 Year
  Sex: Male

DRUGS (6)
  1. ACTOS [Suspect]
     Indication: DIABETES MELLITUS
     Dosage: 45 MG, (45 MG, 1 IN 1 D), PER ORAL
     Route: 048
     Dates: start: 20050101, end: 20070101
  2. METOPROLOL TARTRATE [Concomitant]
  3. ALLOPURINOL [Concomitant]
  4. DIOVAN HCT [Concomitant]
  5. MARCUMAR [Concomitant]
  6. METFORMIN HCL [Concomitant]

REACTIONS (1)
  - BLADDER TRANSITIONAL CELL CARCINOMA [None]
